FAERS Safety Report 13760167 (Version 1)
Quarter: 2017Q3

REPORT INFORMATION
  Report Type: Spontaneous
  Country: US (occurrence: US)
  Receive Date: 20170717
  Receipt Date: 20170717
  Transmission Date: 20171127
  Serious: Yes (Death, Other)
  Sender: FDA-Public Use
  Company Number: US-BRISTOL-MYERS SQUIBB COMPANY-BMS-2017-063051

PATIENT
  Sex: Male
  Weight: 58.96 kg

DRUGS (1)
  1. OPDIVO [Suspect]
     Active Substance: NIVOLUMAB
     Indication: LUNG CARCINOMA CELL TYPE UNSPECIFIED STAGE IV
     Dosage: UNK, QWK
     Route: 042
     Dates: start: 201511

REACTIONS (11)
  - Balance disorder [Unknown]
  - Chills [Unknown]
  - Death [Fatal]
  - Gait disturbance [Unknown]
  - Tremor [Unknown]
  - Off label use [Unknown]
  - Malignant neoplasm progression [Unknown]
  - Hallucination [Unknown]
  - Feeling cold [Unknown]
  - Fall [Unknown]
  - Malaise [Unknown]
